FAERS Safety Report 6127275-5 (Version None)
Quarter: 2009Q1

REPORT INFORMATION
  Report Type: 
  Country: None (occurrence: None)
  Receive Date: 20090319
  Receipt Date: 20090305
  Transmission Date: 20090719
  Serious: Yes (Hospitalization)
  Sender: FDA-Public Use
  Company Number: 02100-JPN-06-0434

PATIENT
  Age: 58 Year
  Sex: Female

DRUGS (12)
  1. PLAVIX [Suspect]
     Indication: CEREBRAL INFARCTION
     Dosage: 75 MG, DAILY DOSE ORAL
     Route: 048
     Dates: start: 20060831, end: 20060907
  2. NORMAL SALINE (SODIUM CHLORIDE) INJECTION [Concomitant]
  3. THIAMINE (THIAMINE) INJECTION [Concomitant]
  4. ASPIRIN [Concomitant]
  5. ATORVASTATIN CALCIUM [Concomitant]
  6. CITICHOLINE (CITICHOLINE) UNKNOWN [Concomitant]
  7. SIMETIDINE (SIMETIDINE) UNKNOWN [Concomitant]
  8. MOSAPRIDE CITRATE (MOSAPRIDE CITRATE) UNKNOWN [Concomitant]
  9. GABAPENTIN [Concomitant]
  10. METFORMIN HYDROCHLORIDE [Concomitant]
  11. DOBESILATE CALCIUM (DOBESILATE CALCIUM) UNKNOWN [Concomitant]
  12. AMITRIPTYLINE HYDROCHLORIDE (AMITRIPTYLINE HYDROCHLORIDE) UNKNOWN [Concomitant]

REACTIONS (1)
  - HAEMORRHAGIC TRANSFORMATION STROKE [None]
